FAERS Safety Report 4630114-2 (Version None)
Quarter: 2005Q2

REPORT INFORMATION
  Report Type: 
  Country: None (occurrence: None)
  Receive Date: 20050408
  Receipt Date: 20050224
  Transmission Date: 20051028
  Serious: Yes (Hospitalization)
  Sender: FDA-Public Use
  Company Number: FR-GLAXOSMITHKLINE-B0372730A

PATIENT
  Age: 74 Year
  Sex: Male
  Weight: 135 kg

DRUGS (9)
  1. CLAMOXYL [Suspect]
     Indication: BLOOD CULTURE POSITIVE
     Dosage: 8G PER DAY
     Route: 042
     Dates: start: 20041208, end: 20050104
  2. GENTAMICIN [Concomitant]
     Indication: BLOOD CULTURE POSITIVE
     Dates: start: 20041208, end: 20041214
  3. OFLOCET [Concomitant]
     Indication: BLOOD CULTURE POSITIVE
     Dosage: 400MG PER DAY
     Route: 048
     Dates: start: 20041214
  4. HYZAAR [Concomitant]
     Dosage: 1UNIT PER DAY
     Route: 048
  5. PREVISCAN [Concomitant]
     Dosage: 20MG PER DAY
     Route: 048
  6. TIMOPTIC [Concomitant]
     Route: 061
  7. AMLOR [Concomitant]
     Dosage: 5MG TWICE PER DAY
     Route: 048
  8. PEVARYL [Concomitant]
  9. TOBRADEX [Concomitant]

REACTIONS (7)
  - ACUTE PULMONARY OEDEMA [None]
  - EOSINOPHILIA [None]
  - NEPHRITIS INTERSTITIAL [None]
  - PRURITUS [None]
  - RENAL FAILURE ACUTE [None]
  - SKIN LESION [None]
  - URTICARIA [None]
